FAERS Safety Report 16539612 (Version 1)
Quarter: 2019Q3

REPORT INFORMATION
  Report Type: Spontaneous
  Country: US (occurrence: US)
  Receive Date: 20190705
  Receipt Date: 20190705
  Transmission Date: 20191004
  Serious: Yes (Other)
  Sender: FDA-Public Use
  Company Number: None

PATIENT
  Age: 64 Year
  Sex: Female
  Weight: 85.5 kg

DRUGS (4)
  1. ROBAXIN [Concomitant]
     Active Substance: METHOCARBAMOL
  2. EQUATE RESTORE PM NIGHTTIME LUBRICANT EYE [Suspect]
     Active Substance: MINERAL OIL\PETROLATUM
     Indication: CHEMICAL BURNS OF EYE
     Dosage: ?          OTHER STRENGTH:1;QUANTITY:1 1/4^;OTHER FREQUENCY:PM/OR AS NEEDED;?
     Route: 047
  3. NURONTIN [Concomitant]
  4. NORCO [Concomitant]
     Active Substance: ACETAMINOPHEN\HYDROCODONE BITARTRATE

REACTIONS (4)
  - Application site pain [None]
  - Eye pain [None]
  - Ocular hyperaemia [None]
  - Recalled product administered [None]

NARRATIVE: CASE EVENT DATE: 20190213
